FAERS Safety Report 16958117 (Version 2)
Quarter: 2019Q4

REPORT INFORMATION
  Report Type: Spontaneous
  Country: US (occurrence: US)
  Receive Date: 20191024
  Receipt Date: 20191210
  Transmission Date: 20200122
  Serious: Yes (Other)
  Sender: FDA-Public Use
  Company Number: US-SEPTODONT-201905523

PATIENT
  Age: 38 Year
  Sex: Female
  Weight: 220 kg

DRUGS (1)
  1. SEPTOCAINE [Suspect]
     Active Substance: ARTICAINE HYDROCHLORIDE\EPINEPHRINE BITARTRATE
     Indication: DENTAL LOCAL ANAESTHESIA
     Route: 004
     Dates: start: 20190911, end: 20190911

REACTIONS (11)
  - Dizziness [Unknown]
  - Facial paralysis [Not Recovered/Not Resolved]
  - Eye movement disorder [Not Recovered/Not Resolved]
  - Hypoaesthesia [Unknown]
  - Ageusia [Unknown]
  - Paraesthesia oral [Not Recovered/Not Resolved]
  - Anxiety [Unknown]
  - Ocular discomfort [Unknown]
  - Hypoaesthesia oral [Recovered/Resolved]
  - Burning sensation [Unknown]
  - Disorientation [Unknown]

NARRATIVE: CASE EVENT DATE: 201909
